FAERS Safety Report 7503271-8 (Version None)
Quarter: 2011Q2

REPORT INFORMATION
  Report Type: 
  Country: None (occurrence: None)
  Receive Date: 20110518
  Receipt Date: 20110511
  Transmission Date: 20111010
  Serious: Yes (Hospitalization, Other)
  Sender: FDA-Public Use
  Company Number: 1000020851

PATIENT
  Age: 53 Year
  Sex: Female

DRUGS (1)
  1. CELEXA [Suspect]
     Indication: DEPRESSION
     Dosage: (1 IN 1 D), ORAL
     Route: 048
     Dates: end: 20110201

REACTIONS (2)
  - HYPOTHYROIDISM [None]
  - THYROID CANCER [None]
